FAERS Safety Report 5131693-1 (Version None)
Quarter: 2006Q4

REPORT INFORMATION
  Report Type: 
  Country: None (occurrence: None)
  Receive Date: 20061016
  Receipt Date: 20061003
  Transmission Date: 20070319
  Serious: Yes (Life-Threatening, Hospitalization, Other)
  Sender: FDA-Public Use
  Company Number: FRWYE650310AUG06

PATIENT
  Age: 3 Year
  Sex: Male

DRUGS (1)
  1. ADVIL [Suspect]
     Indication: PYREXIA
     Dosage: 2 INTAKES
     Route: 048
     Dates: start: 20060701, end: 20060701

REACTIONS (3)
  - STAPHYLOCOCCAL INFECTION [None]
  - SUPERINFECTION [None]
  - TOXIC EPIDERMAL NECROLYSIS [None]
